FAERS Safety Report 4627872-X (Version None)
Quarter: 2005Q2

REPORT INFORMATION
  Report Type: 
  Country: None (occurrence: None)
  Receive Date: 20050406
  Receipt Date: 20050127
  Transmission Date: 20051028
  Serious: Yes (Hospitalization)
  Sender: FDA-Public Use
  Company Number: 200510343JP

PATIENT
  Age: 67 Year
  Sex: Female
  Weight: 57 kg

DRUGS (7)
  1. ARAVA [Suspect]
     Indication: RHEUMATOID ARTHRITIS
     Route: 048
     Dates: start: 20041111, end: 20050221
  2. VOLTAREN [Concomitant]
     Indication: RHEUMATOID ARTHRITIS
     Dosage: DOSE UNIT: UNITS
     Route: 054
  3. ULGUT [Concomitant]
     Indication: PROPHYLAXIS
     Dosage: DOSE: 2 CAPSULES
     Route: 048
  4. PERSANTIN-L [Concomitant]
     Indication: MYOCARDIAL INFARCTION
     Route: 048
  5. EUGLUCON [Concomitant]
     Indication: DIABETES MELLITUS
     Route: 048
  6. RHEUMATREX [Concomitant]
     Indication: RHEUMATOID ARTHRITIS
     Dosage: DOSE: 3 CAPSULES  PER WEEK
     Route: 048
     Dates: end: 20041110
  7. LEUCOVORIN CALCIUM [Concomitant]
     Indication: RHEUMATOID ARTHRITIS
     Dosage: DOSE: 1 TABLET PER WEEK
     Route: 048
     Dates: end: 20041110

REACTIONS (4)
  - BLOOD GLUCOSE FLUCTUATION [None]
  - LEFT VENTRICULAR FAILURE [None]
  - MYOCARDIAL INFARCTION [None]
  - RED BLOOD CELL COUNT DECREASED [None]
